FAERS Safety Report 6784153-6 (Version None)
Quarter: 2010Q2

REPORT INFORMATION
  Report Type: 
  Country: None (occurrence: None)
  Receive Date: 20100622
  Receipt Date: 20100611
  Transmission Date: 20101027
  Serious: Yes (Other)
  Sender: FDA-Public Use
  Company Number: JP-JNJFOC-20100604742

PATIENT
  Sex: Female
  Weight: 43 kg

DRUGS (11)
  1. DOXORUBICIN HCL [Suspect]
     Indication: OVARIAN CANCER RECURRENT
     Dosage: COURSE 2
     Route: 042
  2. DOXORUBICIN HCL [Suspect]
     Dosage: COURSE 1
     Route: 042
  3. DAI-KENCHU-TO [Concomitant]
     Indication: PROPHYLAXIS
     Route: 048
  4. PONTAL [Concomitant]
     Indication: PROPHYLAXIS
     Route: 048
  5. RANIMERCK [Concomitant]
     Indication: PROPHYLAXIS
     Route: 048
  6. HACHIAZULE [Concomitant]
     Indication: PROPHYLAXIS
     Route: 002
  7. RAMELTEON [Concomitant]
     Indication: PROPHYLAXIS
     Route: 048
  8. PRIMPERAN TAB [Concomitant]
     Indication: PROPHYLAXIS
     Route: 048
  9. BECLOMETASONE DIPROPIONATE [Concomitant]
     Indication: PROPHYLAXIS
     Route: 065
  10. DECADRON [Concomitant]
     Indication: PROPHYLAXIS
     Route: 042
  11. DECADRON [Concomitant]
     Route: 042

REACTIONS (1)
  - RENAL FAILURE CHRONIC [None]
